FAERS Safety Report 4867926-6 (Version None)
Quarter: 2005Q4

REPORT INFORMATION
  Report Type: 
  Country: None (occurrence: None)
  Receive Date: 20051227
  Receipt Date: 20051220
  Transmission Date: 20060501
  Serious: Yes (Hospitalization)
  Sender: FDA-Public Use
  Company Number: 230022E05RUS

PATIENT
  Age: 19 Year
  Sex: Female

DRUGS (5)
  1. REBIF [Suspect]
     Dosage: SEE IMAGE
     Route: 058
     Dates: start: 20041014, end: 20041026
  2. REBIF [Suspect]
     Dosage: SEE IMAGE
     Route: 058
     Dates: start: 20041028, end: 20041109
  3. REBIF [Suspect]
     Dosage: SEE IMAGE
     Route: 058
     Dates: start: 20041111, end: 20050331
  4. REBIF [Suspect]
     Dosage: SEE IMAGE
     Route: 058
     Dates: start: 20050503, end: 20050518
  5. REBIF [Suspect]
     Dosage: SEE IMAGE
     Route: 058
     Dates: start: 20050615

REACTIONS (1)
  - BACTERIAL PYELONEPHRITIS [None]
